FAERS Safety Report 15608088 (Version 1)
Quarter: 2018Q4

REPORT INFORMATION
  Report Type: Spontaneous
  Country: US (occurrence: US)
  Receive Date: 20181107
  Receipt Date: 20181107
  Transmission Date: 20190205
  Serious: Yes (Death)
  Sender: FDA-Public Use
  Company Number: None

PATIENT
  Age: 38 Year
  Sex: Female
  Weight: 112 kg

DRUGS (9)
  1. LORTADINE [Concomitant]
  2. ASPIRIN. [Suspect]
     Active Substance: ASPIRIN
     Dates: end: 20181030
  3. BIOTIN [Concomitant]
     Active Substance: BIOTIN
  4. TAMOXIFEN [Concomitant]
     Active Substance: TAMOXIFEN
  5. TRAMADOL. [Concomitant]
     Active Substance: TRAMADOL
  6. ULTRAM [Concomitant]
     Active Substance: TRAMADOL HYDROCHLORIDE
  7. METOPROLOL TARTRATE. [Concomitant]
     Active Substance: METOPROLOL TARTRATE
  8. ALPRAZOLAM. [Concomitant]
     Active Substance: ALPRAZOLAM
  9. MULTI VITAMIN [Concomitant]
     Active Substance: VITAMINS

REACTIONS (2)
  - Accidental death [None]
  - Accident [None]

NARRATIVE: CASE EVENT DATE: 20181030
